FAERS Safety Report 10432616 (Version 1)
Quarter: 2014Q3

REPORT INFORMATION
  Report Type: Spontaneous
  Country: US (occurrence: None)
  Receive Date: 20140815
  Receipt Date: 20140815
  Transmission Date: 20150326
  Serious: No
  Sender: FDA-Public Use
  Company Number: A-NJ2014-102166

PATIENT
  Age: 75 Year
  Sex: Male

DRUGS (2)
  1. TYVASO (TREPROSTINIL SODIUM) [Concomitant]
  2. OPSUMIT [Suspect]
     Active Substance: MACITENTAN
     Indication: PULMONARY ARTERIAL HYPERTENSION
     Route: 048
     Dates: start: 20140128

REACTIONS (4)
  - Dyspnoea exertional [None]
  - Dizziness [None]
  - Chest discomfort [None]
  - Oedema peripheral [None]
